FAERS Safety Report 10188365 (Version 1)
Quarter: 2014Q2

REPORT INFORMATION
  Report Type: Spontaneous
  Country: US (occurrence: None)
  Receive Date: 20140521
  Receipt Date: 20140521
  Transmission Date: 20141212
  Serious: Yes (Other)
  Sender: FDA-Public Use
  Company Number: None

PATIENT
  Age: 64 Year
  Sex: Female
  Weight: 62.6 kg

DRUGS (1)
  1. CYMBALTA [Suspect]
     Indication: DEPRESSION
     Dosage: 1 TAB AT NIGHT, AT BEDTIME, TAKEN BY MOUTH
     Route: 048
     Dates: start: 20140219, end: 20140220

REACTIONS (1)
  - Nightmare [None]
